FAERS Safety Report 20289105 (Version 4)
Quarter: 2022Q2

REPORT INFORMATION
  Report Type: Report from Study
  Country: IT (occurrence: IT)
  Receive Date: 20220104
  Receipt Date: 20220427
  Transmission Date: 20220721
  Serious: Yes (Hospitalization, Other)
  Sender: FDA-Public Use
  Company Number: IT-002147023-NVSC2021IT172794

PATIENT
  Age: 79 Year
  Sex: Female

DRUGS (4)
  1. OLMESARTAN [Suspect]
     Active Substance: OLMESARTAN
     Indication: Hypertension
     Dosage: 20 MILLIGRAM, ONCE A DAY
     Route: 065
     Dates: start: 2003
  2. PREDNISONE [Concomitant]
     Active Substance: PREDNISONE
     Indication: Coeliac disease
     Dosage: UNK
     Route: 065
  3. PREDNISONE [Concomitant]
     Active Substance: PREDNISONE
     Dosage: HIGH DOSE
     Route: 065
     Dates: start: 201204
  4. AZATHIOPRINE [Concomitant]
     Active Substance: AZATHIOPRINE
     Indication: Coeliac disease
     Dosage: 50 MILLIGRAM, ONCE A DAY
     Route: 065
     Dates: start: 201204

REACTIONS (10)
  - Gastric mucosal hypertrophy [Recovered/Resolved]
  - Gastrointestinal disorder [Recovered/Resolved]
  - Malabsorption [Recovering/Resolving]
  - Chronic gastritis [Recovering/Resolving]
  - Intestinal intraepithelial lymphocytes increased [Recovering/Resolving]
  - Collagen disorder [Recovering/Resolving]
  - Sprue-like enteropathy [Recovered/Resolved]
  - Microvillous inclusion disease [Recovering/Resolving]
  - Cryptitis [Recovered/Resolved]
  - Intestinal villi atrophy [Recovered/Resolved]
